FAERS Safety Report 12340308 (Version 1)
Quarter: 2016Q2

REPORT INFORMATION
  Report Type: Spontaneous
  Country: US (occurrence: None)
  Receive Date: 20160505
  Receipt Date: 20160505
  Transmission Date: 20160815
  Serious: Yes (Hospitalization, Disabling)
  Sender: FDA-Public Use
  Company Number: None

PATIENT
  Age: 40 Year
  Sex: Female
  Weight: 61.24 kg

DRUGS (7)
  1. DHA SUPPLEMENTS [Concomitant]
  2. TURMERIC [Concomitant]
     Active Substance: TURMERIC
  3. SULFASALAZINE. [Concomitant]
     Active Substance: SULFASALAZINE
  4. VITAMIN C [Concomitant]
     Active Substance: ASCORBIC ACID
  5. NEUPOGEN [Suspect]
     Active Substance: FILGRASTIM
     Indication: WHITE BLOOD CELL COUNT DECREASED
     Route: 058
     Dates: start: 20150626, end: 20150626
  6. RITUXAN [Concomitant]
     Active Substance: RITUXIMAB
  7. VITAMIN D [Concomitant]
     Active Substance: CHOLECALCIFEROL

REACTIONS (3)
  - Arthritis reactive [None]
  - Asthenia [None]
  - Activities of daily living impaired [None]

NARRATIVE: CASE EVENT DATE: 20150626
